FAERS Safety Report 17787046 (Version 2)
Quarter: 2020Q3

REPORT INFORMATION
  Report Type: Spontaneous
  Country: FR (occurrence: FR)
  Receive Date: 20200514
  Receipt Date: 20200706
  Transmission Date: 20201102
  Serious: Yes (Other)
  Sender: FDA-Public Use
  Company Number: FR-ACTELION-A-CH2020-204786

PATIENT
  Age: 59 Year
  Sex: Female

DRUGS (3)
  1. THYROZOL [Interacting]
     Active Substance: METHIMAZOLE
     Indication: HYPERTHYROIDISM
     Dosage: 5 MG, QD
     Route: 048
     Dates: start: 201910
  2. BOSENTAN. [Suspect]
     Active Substance: BOSENTAN
     Indication: SCLERODERMA
     Dosage: UNK
     Route: 048
  3. THYROZOL [Interacting]
     Active Substance: METHIMAZOLE
     Dosage: 10 MG, QD
     Route: 048

REACTIONS (5)
  - Hyperthyroidism [Unknown]
  - Hypothyroidism [Unknown]
  - Product availability issue [Unknown]
  - Product dose omission issue [Unknown]
  - Drug interaction [Unknown]

NARRATIVE: CASE EVENT DATE: 202004
